FAERS Safety Report 19021517 (Version 1)
Quarter: 2021Q1

REPORT INFORMATION
  Report Type: Spontaneous
  Country: BR (occurrence: BR)
  Receive Date: 20210317
  Receipt Date: 20210317
  Transmission Date: 20210420
  Serious: Yes (Hospitalization)
  Sender: FDA-Public Use
  Company Number: BR-ASTRAZENECA-2020SF62606

PATIENT
  Age: 15 Year
  Sex: Female

DRUGS (1)
  1. VANNAIR [Suspect]
     Active Substance: BUDESONIDE\FORMOTEROL FUMARATE DIHYDRATE
     Dosage: 160/4.5 UG, UNKNOWN UNKNOWN
     Route: 055

REACTIONS (2)
  - Off label use [Not Recovered/Not Resolved]
  - Tracheostomy malfunction [Recovered/Resolved]

NARRATIVE: CASE EVENT DATE: 2020
